FAERS Safety Report 4743825-5 (Version None)
Quarter: 2005Q3

REPORT INFORMATION
  Report Type: 
  Country: None (occurrence: None)
  Receive Date: 20050809
  Receipt Date: 20050513
  Transmission Date: 20060218
  Serious: Yes (Life-Threatening, Hospitalization, Disabling)
  Sender: FDA-Public Use
  Company Number: 2005FR-00186

PATIENT
  Age: 90 Year
  Sex: Female

DRUGS (9)
  1. ASPIRIN [Suspect]
     Dosage: 75 MG OM
     Route: 048
     Dates: end: 20050427
  2. CITALOPRAM [Suspect]
     Dosage: 20 MG OM
     Route: 048
  3. LANSOPRAZOLE [Concomitant]
  4. AMLODIPINE [Concomitant]
  5. PERINDOPRIL [Concomitant]
  6. LACTULOSE [Concomitant]
  7. SENNA [Concomitant]
  8. BENDROFLUMETHIAZIDE [Concomitant]
  9. SIMVASTATIN [Concomitant]

REACTIONS (1)
  - GASTROINTESTINAL HAEMORRHAGE [None]
